FAERS Safety Report 20696126 (Version 1)
Quarter: 2022Q2

REPORT INFORMATION
  Report Type: Spontaneous
  Country: CN (occurrence: CN)
  Receive Date: 20220411
  Receipt Date: 20220411
  Transmission Date: 20220721
  Serious: Yes (Other)
  Sender: FDA-Public Use
  Company Number: CN-PFIZER INC-202200494422

PATIENT
  Age: 30 Year
  Sex: Female
  Weight: 80 kg

DRUGS (1)
  1. AZITHROMYCIN [Suspect]
     Active Substance: AZITHROMYCIN
     Indication: Inflammation
     Dosage: 0.5 G, 1X/DAY
     Route: 048
     Dates: start: 20220306, end: 20220306

REACTIONS (2)
  - Abdominal distension [Recovering/Resolving]
  - Chest discomfort [Recovering/Resolving]

NARRATIVE: CASE EVENT DATE: 20220306
